FAERS Safety Report 19845317 (Version 1)
Quarter: 2021Q3

REPORT INFORMATION
  Report Type: Spontaneous
  Country: US (occurrence: US)
  Receive Date: 20210916
  Receipt Date: 20210916
  Transmission Date: 20211014
  Serious: Yes (Hospitalization)
  Sender: FDA-Public Use
  Company Number: None

PATIENT
  Age: 6 Week
  Sex: Female

DRUGS (1)
  1. CBD DELTA 8 GUMMIES [Suspect]
     Active Substance: CANNABIDIOL\.DELTA.8-TETRAHYDROCANNABINOL\HERBALS
     Indication: SLEEP DISORDER THERAPY
     Dosage: ?          QUANTITY:1 GUMMIE;?
     Route: 048
     Dates: start: 20210805, end: 20210806

REACTIONS (8)
  - Insomnia [None]
  - Pulmonary congestion [None]
  - Pneumonia [None]
  - Gait disturbance [None]
  - Psychomotor hyperactivity [None]
  - Hallucination [None]
  - Migraine [None]
  - Sinus congestion [None]

NARRATIVE: CASE EVENT DATE: 20210805
